FAERS Safety Report 23569557 (Version 1)
Quarter: 2024Q1

REPORT INFORMATION
  Report Type: Spontaneous
  Country: US (occurrence: US)
  Receive Date: 20240227
  Receipt Date: 20240227
  Transmission Date: 20240410
  Serious: Yes (Hospitalization)
  Sender: FDA-Public Use
  Company Number: US-AMGEN-USASP2024035283

PATIENT
  Age: 23 Year
  Sex: Female

DRUGS (1)
  1. INFLIXIMAB [Suspect]
     Active Substance: INFLIXIMAB
     Indication: Crohn^s disease
     Dosage: UNK
     Route: 065

REACTIONS (4)
  - Crohn^s disease [Recovering/Resolving]
  - Diarrhoea [Recovered/Resolved]
  - Erythema nodosum [Unknown]
  - Psoriasis [Not Recovered/Not Resolved]
